FAERS Safety Report 9420838 (Version 1)
Quarter: 2013Q3

REPORT INFORMATION
  Report Type: Spontaneous
  Country: US (occurrence: US)
  Receive Date: 20130725
  Receipt Date: 20130725
  Transmission Date: 20140515
  Serious: No
  Sender: FDA-Public Use
  Company Number: US-ABBOTT-13P-163-1088794-00

PATIENT
  Sex: Female
  Weight: 54.48 kg

DRUGS (4)
  1. SYNTHROID [Suspect]
     Indication: HYPOTHYROIDISM
     Dates: start: 201301, end: 201302
  2. SYNTHROID [Suspect]
     Dates: start: 20130513
  3. CYTOMEL [Concomitant]
     Indication: HYPOTHYROIDISM
  4. ERRIN [Concomitant]
     Indication: CONTRACEPTION
     Route: 048

REACTIONS (1)
  - Fatigue [Recovered/Resolved]
